FAERS Safety Report 10143678 (Version 1)
Quarter: 2014Q2

REPORT INFORMATION
  Report Type: Spontaneous
  Country: US (occurrence: US)
  Receive Date: 20140430
  Receipt Date: 20140430
  Transmission Date: 20141212
  Serious: No
  Sender: FDA-Public Use
  Company Number: US-PFIZER INC-2014116498

PATIENT
  Age: 73 Year
  Sex: Male
  Weight: 99.8 kg

DRUGS (11)
  1. TIKOSYN [Suspect]
     Indication: ARRHYTHMIA
     Dosage: 500 UG, 2X/DAY
     Dates: start: 20140307, end: 20140421
  2. ASPIRIN [Concomitant]
     Dosage: 81 MG, DAILY
  3. FISH OIL OMEGA 3 [Concomitant]
     Dosage: UNK, DAILY
  4. IRON [Concomitant]
     Dosage: 325 MG, DAILY
  5. LUMIGAN [Concomitant]
     Dosage: 1 GTT, DAILY
  6. ALPHAGAN [Concomitant]
     Dosage: 1 GTT, 2X/DAY
  7. VITAMIN B12 [Concomitant]
     Dosage: 1000 UG, DAILY
  8. VITAMIN C [Concomitant]
     Dosage: 1000 MG, DAILY
  9. VITAMIN D [Concomitant]
     Dosage: 2000 IU, DAILY
  10. XARELTO [Concomitant]
     Dosage: 20 MG, DAILY
  11. FELODIPINE [Concomitant]
     Indication: BLOOD PRESSURE ABNORMAL
     Dosage: 2.5 MG, DAILY

REACTIONS (21)
  - Ocular hyperaemia [Recovering/Resolving]
  - Muscle swelling [Recovering/Resolving]
  - Fatigue [Recovering/Resolving]
  - Limb discomfort [Recovering/Resolving]
  - Rash [Recovering/Resolving]
  - Pruritus [Recovering/Resolving]
  - Skin plaque [Recovering/Resolving]
  - Decreased appetite [Recovering/Resolving]
  - Asthenia [Recovering/Resolving]
  - Nausea [Recovering/Resolving]
  - Back pain [Recovering/Resolving]
  - Pain in extremity [Recovering/Resolving]
  - Muscle spasms [Recovering/Resolving]
  - Arthropathy [Recovering/Resolving]
  - Muscle disorder [Recovering/Resolving]
  - Jaw disorder [Recovering/Resolving]
  - Gait disturbance [Recovering/Resolving]
  - Abdominal pain upper [Recovering/Resolving]
  - Constipation [Recovering/Resolving]
  - Coordination abnormal [Recovering/Resolving]
  - Headache [Recovering/Resolving]
